FAERS Safety Report 21199556 (Version 1)
Quarter: 2022Q3

REPORT INFORMATION
  Report Type: Spontaneous
  Country: US (occurrence: US)
  Receive Date: 20220811
  Receipt Date: 20220811
  Transmission Date: 20221027
  Serious: Yes (Hospitalization, Other)
  Sender: FDA-Public Use
  Company Number: US-NOVARTISPH-NVSC2022US180074

PATIENT
  Age: 33 Year
  Sex: Male

DRUGS (2)
  1. EVEROLIMUS [Suspect]
     Active Substance: EVEROLIMUS
     Indication: Product used for unknown indication
     Dosage: UNK
     Route: 065
     Dates: end: 20220624
  2. LENVIMA [Suspect]
     Active Substance: LENVATINIB
     Indication: Metastases to kidney
     Dosage: 18 MG, QD
     Route: 065
     Dates: start: 20220607, end: 20220624

REACTIONS (7)
  - Hyperhidrosis [Unknown]
  - Body temperature increased [Unknown]
  - Lymphoma [Unknown]
  - Pulmonary mass [Unknown]
  - Swelling face [Unknown]
  - Facial pain [Unknown]
  - Hangnail [Unknown]
